FAERS Safety Report 17177051 (Version 6)
Quarter: 2022Q3

REPORT INFORMATION
  Report Type: Report from Study
  Country: JP (occurrence: JP)
  Receive Date: 20191219
  Receipt Date: 20220823
  Transmission Date: 20221027
  Serious: Yes (Hospitalization, Other)
  Sender: FDA-Public Use
  Company Number: JP-ALEXION PHARMACEUTICALS INC.-A201900419

PATIENT
  Age: 6 Year
  Sex: Male

DRUGS (25)
  1. ALFAROL [Suspect]
     Active Substance: ALFACALCIDOL
     Indication: Hypophosphatasia
     Dosage: 1.5 ML, QD
     Route: 048
     Dates: end: 20180821
  2. ALFAROL [Suspect]
     Active Substance: ALFACALCIDOL
     Dosage: 2.5 ML, QD
     Route: 048
     Dates: start: 20180822, end: 20190311
  3. STRENSIQ [Suspect]
     Active Substance: ASFOTASE ALFA
     Dosage: 1 MG/KG, SINGLE
     Route: 058
     Dates: start: 20181130, end: 20181130
  4. STRENSIQ [Suspect]
     Active Substance: ASFOTASE ALFA
     Dosage: 1 MG/KG, SINGLE
     Route: 058
     Dates: start: 20190130, end: 20190130
  5. STRENSIQ [Suspect]
     Active Substance: ASFOTASE ALFA
     Indication: Hypophosphatasia
     Dosage: 2 MG/KG, TIW
     Route: 058
     Dates: start: 20150925, end: 20181129
  6. STRENSIQ [Suspect]
     Active Substance: ASFOTASE ALFA
     Dosage: 2 MG/KG, TIW
     Route: 058
     Dates: start: 20181201, end: 20190129
  7. STRENSIQ [Suspect]
     Active Substance: ASFOTASE ALFA
     Dosage: 2 MG/KG, TIW
     Route: 058
     Dates: start: 20190131, end: 20191122
  8. STRENSIQ [Suspect]
     Active Substance: ASFOTASE ALFA
     Dosage: 2 MG/KG, BIW
     Route: 058
     Dates: start: 20191125
  9. PYRIDOXAL PHOSPHATE [Concomitant]
     Active Substance: PYRIDOXAL PHOSPHATE
     Indication: Hypophosphatasia
     Dosage: 0.854 G, TID
     Route: 048
     Dates: end: 20190129
  10. ALLELOCK [Concomitant]
     Active Substance: OLOPATADINE HYDROCHLORIDE
     Indication: Prophylaxis
     Dosage: 0.5 G, TIW
     Route: 048
     Dates: start: 20181212, end: 20191122
  11. ALLELOCK [Concomitant]
     Active Substance: OLOPATADINE HYDROCHLORIDE
     Dosage: 0.5 G, BIW
     Route: 048
     Dates: start: 20191125
  12. PENTOSAN POLYSULFATE SODIUM [Concomitant]
     Active Substance: PENTOSAN POLYSULFATE SODIUM
     Indication: Prophylaxis
     Dosage: 1-2 G, QD
     Dates: start: 20190220
  13. BIOFERMIN                          /01617201/ [Concomitant]
     Indication: Hypophosphatasia
     Dosage: 0.3 G, TID
     Route: 048
  14. DANTRIUM [Concomitant]
     Active Substance: DANTROLENE SODIUM
     Dosage: 11.75 MG, TID
     Route: 048
     Dates: start: 20180620
  15. DANTRIUM [Concomitant]
     Active Substance: DANTROLENE SODIUM
     Indication: Hypophosphatasia
     Dosage: 8.33 MG, TID
     Route: 048
     Dates: end: 20180619
  16. EMLA [Concomitant]
     Active Substance: LIDOCAINE\PRILOCAINE
     Indication: Prophylaxis
     Dosage: 2 DF, TIW
     Dates: end: 20191122
  17. EMLA [Concomitant]
     Active Substance: LIDOCAINE\PRILOCAINE
     Dosage: 2 DF, BIW
     Dates: start: 20191125
  18. POTASSIUM GLUCONATE [Concomitant]
     Active Substance: POTASSIUM GLUCONATE
     Indication: Hypophosphatasia
     Dosage: 1.6 G, TID
     Route: 048
  19. HIRUDOID                           /00723701/ [Concomitant]
     Indication: Prophylaxis
     Dosage: 1-2 G, BID
  20. HYALURONATE SODIUM [Concomitant]
     Active Substance: HYALURONATE SODIUM
     Indication: Prophylaxis
     Dosage: APPROPRIATE AMOUNT, 2-4 TIMES A DAY
     Route: 047
     Dates: end: 20191025
  21. JUZENTAIHOTO                       /07985601/ [Concomitant]
     Indication: Prophylaxis
     Dosage: 1.3 G, TID
     Route: 048
  22. LEVOCARNITINE [Concomitant]
     Active Substance: LEVOCARNITINE
     Indication: Hypophosphatasia
     Dosage: 1.5 ML, TID
     Route: 048
  23. PHENOBAL                           /00023201/ [Concomitant]
     Indication: Hypophosphatasia
     Dosage: 0.3 G, BID
     Route: 048
  24. PYRIDOXAL [Concomitant]
     Active Substance: PYRIDOXAL
     Indication: Hypophosphatasia
     Dosage: 66 MG, TID
     Route: 048
     Dates: start: 20190130
  25. LEVOTHYROXINE SODIUM [Concomitant]
     Active Substance: LEVOTHYROXINE SODIUM
     Indication: Hypophosphatasia
     Dosage: 0.3 G, QD
     Route: 048

REACTIONS (5)
  - Heart rate decreased [Recovered/Resolved]
  - Acute kidney injury [Recovered/Resolved]
  - Pneumonia [Recovered/Resolved]
  - Dyspnoea [Recovered/Resolved]
  - Constipation [Not Recovered/Not Resolved]

NARRATIVE: CASE EVENT DATE: 20180928
